FAERS Safety Report 6080019-8 (Version None)
Quarter: 2009Q1

REPORT INFORMATION
  Report Type: 
  Country: None (occurrence: None)
  Receive Date: 20090217
  Receipt Date: 20090206
  Transmission Date: 20090719
  Serious: Yes (Hospitalization)
  Sender: FDA-Public Use
  Company Number: US-AVENTIS-200911045US

PATIENT
  Age: 64 Year
  Sex: Female

DRUGS (2)
  1. LANTUS [Suspect]
     Route: 058
     Dates: start: 20060113
  2. OPTICLIK (INSULIN INJECTION PEN) [Suspect]
     Dates: start: 20060113

REACTIONS (1)
  - CARDIAC PACEMAKER INSERTION [None]
